FAERS Safety Report 16700315 (Version 1)
Quarter: 2019Q3

REPORT INFORMATION
  Report Type: Spontaneous
  Country: AU (occurrence: AU)
  Receive Date: 20190814
  Receipt Date: 20190814
  Transmission Date: 20191004
  Serious: Yes (Other)
  Sender: FDA-Public Use
  Company Number: AU-ABBVIE-19K-008-2882817-00

PATIENT
  Age: 58 Year
  Sex: Male

DRUGS (5)
  1. USTEKINUMAB [Suspect]
     Active Substance: USTEKINUMAB
     Indication: CROHN^S DISEASE
     Dosage: DOSE ESCALATED
     Route: 065
  2. ADALIMUMAB [Suspect]
     Active Substance: ADALIMUMAB
     Indication: CROHN^S DISEASE
     Route: 058
     Dates: start: 2008, end: 2012
  3. INFLIXIMAB [Suspect]
     Active Substance: INFLIXIMAB
     Dosage: FREQUENCY INCREASED
     Route: 065
  4. INFLIXIMAB [Suspect]
     Active Substance: INFLIXIMAB
     Indication: CROHN^S DISEASE
     Dosage: FREQUENCY INCREASED
     Route: 065
     Dates: start: 2012
  5. USTEKINUMAB [Suspect]
     Active Substance: USTEKINUMAB
     Route: 065

REACTIONS (5)
  - Therapeutic product effect incomplete [Unknown]
  - Rectal discharge [Unknown]
  - Therapeutic product effect decreased [Unknown]
  - Therapeutic product effect delayed [Unknown]
  - Pain [Unknown]
